FAERS Safety Report 19649032 (Version 3)
Quarter: 2021Q4

REPORT INFORMATION
  Report Type: Report from Study
  Country: US (occurrence: US)
  Receive Date: 20210802
  Receipt Date: 20211009
  Transmission Date: 20220304
  Serious: Yes (Hospitalization, Other)
  Sender: FDA-Public Use
  Company Number: NVSC2021US169620

PATIENT
  Age: 52 Year
  Sex: Male

DRUGS (1)
  1. ENTRESTO [Suspect]
     Active Substance: SACUBITRIL\VALSARTAN
     Indication: Cardiac failure chronic
     Dosage: 100 MG (49/51 MG)
     Route: 065
     Dates: start: 202007

REACTIONS (9)
  - Hypervolaemia [Recovering/Resolving]
  - Nerve compression [Recovering/Resolving]
  - Gait inability [Recovering/Resolving]
  - Blindness [Unknown]
  - Weight decreased [Recovering/Resolving]
  - Illness [Unknown]
  - Suspected COVID-19 [Unknown]
  - Glycosylated haemoglobin decreased [Recovering/Resolving]
  - Malaise [Unknown]

NARRATIVE: CASE EVENT DATE: 20201001
